FAERS Safety Report 6862635-6 (Version None)
Quarter: 2010Q3

REPORT INFORMATION
  Report Type: 
  Country: None (occurrence: None)
  Receive Date: 20100716
  Receipt Date: 20100702
  Transmission Date: 20110219
  Serious: Yes (Disabling)
  Sender: FDA-Public Use
  Company Number: 1000015049

PATIENT
  Age: 57 Year
  Sex: Female
  Weight: 75 kg

DRUGS (6)
  1. ESCITALOPRAM [Suspect]
     Indication: DEPRESSION
     Dosage: 10 MG (10 MG, 1 IN 1 D), ORAL
     Route: 048
     Dates: start: 20100518, end: 20100520
  2. NEBIVOLOL HYDROCHLORIDE (TABLETS) [Concomitant]
  3. CANDESARTAN CILEXETIL (TABLETS) [Concomitant]
  4. OMEPRAZOLE [Concomitant]
  5. SIMVASTATIN [Concomitant]
  6. LORAZEPAM [Concomitant]

REACTIONS (5)
  - COLD SWEAT [None]
  - HEADACHE [None]
  - MUSCULAR WEAKNESS [None]
  - NAUSEA [None]
  - VISION BLURRED [None]
